FAERS Safety Report 8592757-3 (Version None)
Quarter: 2012Q3

REPORT INFORMATION
  Report Type: 
  Country: None (occurrence: None)
  Receive Date: 20120814
  Receipt Date: 20120807
  Transmission Date: 20120928
  Serious: Yes (Hospitalization, Disabling)
  Sender: FDA-Public Use
  Company Number: CH-PFIZER INC-2012193579

PATIENT
  Age: 55 Year
  Sex: Male
  Weight: 64 kg

DRUGS (16)
  1. PRAZEPAM [Concomitant]
     Indication: ANXIETY
     Dosage: UNK
     Dates: start: 20001001
  2. DIAZEPAM [Concomitant]
     Indication: BACK DISORDER
     Dosage: UNK
     Dates: start: 20021125
  3. ZOLPIDEM [Concomitant]
     Indication: SLEEP DISORDER
     Dosage: UNK
     Dates: start: 20021125
  4. CORTISOL [Concomitant]
     Indication: BLOOD THYROID STIMULATING HORMONE DECREASED
     Dosage: UNK
     Dates: start: 19921119
  5. ETILEFRINE [Concomitant]
     Indication: ESSENTIAL HYPERTENSION
     Dosage: UNK
     Dates: start: 19800701
  6. BEZAFIBRATE [Concomitant]
     Indication: HYPERLIPIDAEMIA
     Dosage: UNK
     Dates: start: 19951124
  7. COLECALCIFEROL [Concomitant]
     Indication: PROPHYLAXIS
     Dosage: UNK
     Dates: start: 19990715
  8. DICLOFENAC [Concomitant]
     Indication: BACK DISORDER
     Dosage: UNK
     Dates: start: 20021125
  9. PANTOPRAZOLE [Concomitant]
     Indication: GASTRIC DISORDER
     Dosage: UNK
     Dates: start: 20020515
  10. NEBIDO [Concomitant]
     Indication: BLOOD LUTEINISING HORMONE DECREASED
     Dosage: UNK
     Dates: start: 19921119
  11. HYDROCORTISONE [Concomitant]
     Indication: BLOOD ANTIDIURETIC HORMONE DECREASED
     Dosage: UNK
     Dates: start: 20001117
  12. CALCIMAGON D3 [Concomitant]
     Indication: PROPHYLAXIS
     Dosage: UNK
     Dates: start: 19990715
  13. GENOTROPIN [Suspect]
     Dosage: 0.6 MG, 1X/DAY 7/WK
     Route: 058
     Dates: start: 20010523
  14. ELTEOXIN [Concomitant]
     Indication: BLOOD THYROID STIMULATING HORMONE DECREASED
     Dosage: UNK
     Dates: start: 19921119
  15. NEBIDO [Concomitant]
     Indication: BLOOD FOLLICLE STIMULATING HORMONE DECREASED
  16. SOMNIUM [Concomitant]
     Indication: SLEEP DISORDER
     Dosage: UNK
     Dates: start: 19981002

REACTIONS (1)
  - OSTEOARTHRITIS [None]
